FAERS Safety Report 9368766 (Version 1)
Quarter: 2013Q2

REPORT INFORMATION
  Report Type: Spontaneous
  Country: US (occurrence: US)
  Receive Date: 20130626
  Receipt Date: 20130626
  Transmission Date: 20140414
  Serious: Yes (Other)
  Sender: FDA-Public Use
  Company Number: CHPA2013US010197

PATIENT
  Age: 81 Year
  Sex: Female

DRUGS (4)
  1. IBUPROFEN [Suspect]
     Indication: PAIN
     Dosage: UNK, UNK
  2. NAPROXEN [Suspect]
     Indication: PAIN
     Dosage: UNK, UNK
  3. NSAID^S [Suspect]
     Dosage: UNK, UNK
  4. VOLTAREN ^NOVARTIS^ [Concomitant]
     Indication: PAIN
     Dosage: UNK, UNK

REACTIONS (6)
  - Rotator cuff syndrome [Unknown]
  - Renal disorder [Unknown]
  - Sciatica [Unknown]
  - Fall [Unknown]
  - Head injury [Unknown]
  - Pain [Unknown]
